FAERS Safety Report 16855440 (Version 1)
Quarter: 2019Q3

REPORT INFORMATION
  Report Type: Report from Study
  Country: JP (occurrence: JP)
  Receive Date: 20190926
  Receipt Date: 20190926
  Transmission Date: 20191005
  Serious: Yes (Death)
  Sender: FDA-Public Use
  Company Number: JP-MYLANLABS-2019M1089390

PATIENT
  Age: 84 Year
  Sex: Female

DRUGS (3)
  1. PREDNISOLONE. [Suspect]
     Active Substance: PREDNISOLONE
     Indication: FACTOR VIII DEFICIENCY
     Dosage: 1 MILLIGRAM/KILOGRAM
     Route: 065
  2. RITUXIMAB. [Suspect]
     Active Substance: RITUXIMAB
     Indication: FACTOR VIII DEFICIENCY
     Dosage: 375 MILLIGRAM/SQ. METER
     Route: 065
  3. EPTACOG ALFA (ACTIVATED) RECOMBINANT [Concomitant]
     Indication: FACTOR VIII DEFICIENCY
     Dosage: 400 MILLIGRAM
     Route: 065

REACTIONS (1)
  - Multiple organ dysfunction syndrome [Fatal]
